FAERS Safety Report 14713893 (Version 2)
Quarter: 2021Q1

REPORT INFORMATION
  Report Type: Report from Study
  Country: US (occurrence: US)
  Receive Date: 20180404
  Receipt Date: 20210204
  Transmission Date: 20210419
  Serious: Yes (Hospitalization)
  Sender: FDA-Public Use
  Company Number: US-ROCHE-2098495

PATIENT
  Age: 66 Year
  Sex: Female
  Weight: 70.3 kg

DRUGS (24)
  1. METFORMIN [Concomitant]
     Active Substance: METFORMIN HYDROCHLORIDE
     Route: 048
     Dates: start: 201608
  2. ALLEGRA [Concomitant]
     Active Substance: FEXOFENADINE HYDROCHLORIDE
     Route: 048
     Dates: start: 2009, end: 20170503
  3. NEXIUM [Concomitant]
     Active Substance: ESOMEPRAZOLE MAGNESIUM
     Route: 048
     Dates: start: 2012, end: 20170507
  4. VENETOCLAX. [Suspect]
     Active Substance: VENETOCLAX
     Dosage: MOST RECENT DOSE: 16/MAY/2017
     Route: 048
     Dates: start: 20170510
  5. PREDNISONE. [Suspect]
     Active Substance: PREDNISONE
     Indication: DIFFUSE LARGE B-CELL LYMPHOMA
     Route: 048
  6. MYRBETRIQ [Concomitant]
     Active Substance: MIRABEGRON
     Route: 048
     Dates: start: 201604, end: 20170503
  7. VENETOCLAX. [Suspect]
     Active Substance: VENETOCLAX
     Route: 048
  8. RITUXIMAB. [Suspect]
     Active Substance: RITUXIMAB
     Indication: DIFFUSE LARGE B-CELL LYMPHOMA
     Route: 042
  9. VINCRISTINE SULFATE. [Suspect]
     Active Substance: VINCRISTINE SULFATE
     Indication: DIFFUSE LARGE B-CELL LYMPHOMA
     Route: 042
  10. TRILIPIX [Concomitant]
     Active Substance: FENOFIBRIC ACID
     Route: 048
     Dates: start: 2012
  11. VENETOCLAX. [Suspect]
     Active Substance: VENETOCLAX
     Route: 048
  12. ETOPOSIDE. [Suspect]
     Active Substance: ETOPOSIDE
     Indication: DIFFUSE LARGE B-CELL LYMPHOMA
     Route: 042
  13. CRESTOR [Concomitant]
     Active Substance: ROSUVASTATIN CALCIUM
     Route: 048
     Dates: start: 2013
  14. CYCLOPHOSPHAMIDE. [Suspect]
     Active Substance: CYCLOPHOSPHAMIDE
     Indication: DIFFUSE LARGE B-CELL LYMPHOMA
     Route: 042
  15. CYMBALTA [Concomitant]
     Active Substance: DULOXETINE HYDROCHLORIDE
     Route: 048
     Dates: start: 2010
  16. SINGULAIR [Concomitant]
     Active Substance: MONTELUKAST SODIUM
     Route: 048
     Dates: start: 2015
  17. ACETAMINOPHEN. [Concomitant]
     Active Substance: ACETAMINOPHEN
     Route: 048
  18. VENETOCLAX. [Suspect]
     Active Substance: VENETOCLAX
     Indication: DIFFUSE LARGE B-CELL LYMPHOMA
     Dosage: VENETOCLAX ADMINISTERED ORALLY ON DAYS 3?12 IN CYCLE 1, AND DAYS 1?10 WITH ALL SUBSEQUENT CYCLES EXC
     Route: 048
  19. SYNTHROID [Concomitant]
     Active Substance: LEVOTHYROXINE SODIUM
     Route: 048
     Dates: start: 2007
  20. ALLOPURINOL. [Concomitant]
     Active Substance: ALLOPURINOL
     Route: 048
     Dates: start: 20170508
  21. DIPHENHYDRAMINE HYDROCHLORIDE. [Concomitant]
     Active Substance: DIPHENHYDRAMINE HYDROCHLORIDE
     Dosage: 50?100 MG
     Route: 048
  22. VENETOCLAX. [Suspect]
     Active Substance: VENETOCLAX
     Route: 048
  23. VENETOCLAX. [Suspect]
     Active Substance: VENETOCLAX
     Route: 048
  24. DOXORUBICIN HYDROCHLORIDE. [Suspect]
     Active Substance: DOXORUBICIN HYDROCHLORIDE
     Indication: DIFFUSE LARGE B-CELL LYMPHOMA
     Route: 042

REACTIONS (9)
  - Constipation [Unknown]
  - Abdominal distension [Unknown]
  - Hypertension [Unknown]
  - Nausea [Unknown]
  - Tachycardia [Unknown]
  - Vomiting [Unknown]
  - Abdominal discomfort [Unknown]
  - Body temperature increased [Unknown]
  - Hypophagia [Unknown]

NARRATIVE: CASE EVENT DATE: 20170516
